FAERS Safety Report 9157101 (Version 1)
Quarter: 2013Q1

REPORT INFORMATION
  Report Type: Spontaneous
  Country: US (occurrence: US)
  Receive Date: 20130312
  Receipt Date: 20130312
  Transmission Date: 20140127
  Serious: No
  Sender: FDA-Public Use
  Company Number: US-PFIZER INC-2013081276

PATIENT
  Age: 80 Year
  Sex: Male

DRUGS (3)
  1. CELEBREX [Suspect]
     Indication: ARTHRALGIA
     Dosage: 200 MG, 1X/DAY
     Route: 048
     Dates: start: 20130225, end: 20130304
  2. DIOVAN [Concomitant]
     Indication: HYPERTENSION
     Dosage: UNK
  3. LIVALO [Concomitant]
     Dosage: UNK

REACTIONS (2)
  - Joint swelling [Recovering/Resolving]
  - Cough [Recovering/Resolving]
